FAERS Safety Report 14476973 (Version 1)
Quarter: 2018Q1

REPORT INFORMATION
  Report Type: Report from Study
  Country: US (occurrence: US)
  Receive Date: 20180201
  Receipt Date: 20180201
  Transmission Date: 20180509
  Serious: Yes (Hospitalization, Other)
  Sender: FDA-Public Use
  Company Number: US-IPSEN-CABO-17011049

PATIENT
  Age: 66 Year
  Sex: Female

DRUGS (14)
  1. CALCIUM [Concomitant]
     Active Substance: CALCIUM
  2. MILK OF MAGNESIA [Concomitant]
     Active Substance: MAGNESIUM HYDROXIDE
  3. CYCLOBENZAPRINE. [Concomitant]
     Active Substance: CYCLOBENZAPRINE
  4. DURAGESIC [Concomitant]
     Active Substance: FENTANYL
  5. LISINOPRIL. [Concomitant]
     Active Substance: LISINOPRIL
  6. FISH OIL [Concomitant]
     Active Substance: FISH OIL
  7. NOVOLOG [Concomitant]
     Active Substance: INSULIN ASPART
  8. LEVEMIR [Concomitant]
     Active Substance: INSULIN DETEMIR
  9. RANITIDINE. [Concomitant]
     Active Substance: RANITIDINE
  10. STOOL SOFTENER (DOCUSATE) [Concomitant]
     Active Substance: DOCUSATE
  11. XGEVA [Concomitant]
     Active Substance: DENOSUMAB
  12. ASPIRIN 81 [Concomitant]
     Active Substance: ASPIRIN
  13. CABOMETYX [Suspect]
     Active Substance: CABOZANTINIB S-MALATE
     Indication: RENAL CANCER
     Dosage: 60 MG, QD
     Route: 048
     Dates: start: 20170810
  14. CETIRIZINE [Concomitant]
     Active Substance: CETIRIZINE HYDROCHLORIDE

REACTIONS (4)
  - Pulmonary embolism [Unknown]
  - Decreased appetite [Unknown]
  - Nausea [Not Recovered/Not Resolved]
  - Weight decreased [Unknown]

NARRATIVE: CASE EVENT DATE: 20171020
